FAERS Safety Report 6450472-6 (Version None)
Quarter: 2009Q4

REPORT INFORMATION
  Report Type: 
  Country: None (occurrence: None)
  Receive Date: 20091123
  Receipt Date: 20091113
  Transmission Date: 20100525
  Serious: Yes (Other)
  Sender: FDA-Public Use
  Company Number: GB-BAYER-200939091GPV

PATIENT
  Age: 31 Year
  Sex: Female

DRUGS (7)
  1. ADALAT [Suspect]
     Indication: HYPERTENSION
  2. LABETALOL HCL [Suspect]
     Indication: PRE-ECLAMPSIA
  3. ISOFLURANE [Concomitant]
     Indication: MAINTENANCE OF ANAESTHESIA
  4. KETAMINE HCL [Concomitant]
     Indication: INDUCTION OF ANAESTHESIA
  5. NITROUS OXIDE [Concomitant]
     Indication: MAINTENANCE OF ANAESTHESIA
  6. PENTASTARCH [Concomitant]
     Route: 041
  7. SUCCINYLCHOLINE CHLORIDE [Concomitant]

REACTIONS (8)
  - ANXIETY [None]
  - CAESAREAN SECTION [None]
  - CENTRAL VENOUS PRESSURE INCREASED [None]
  - HEART RATE ABNORMAL [None]
  - HYPOTENSION [None]
  - PALLOR [None]
  - PREMATURE SEPARATION OF PLACENTA [None]
  - PULMONARY CONGESTION [None]
